FAERS Safety Report 23358534 (Version 1)
Quarter: 2023Q4

REPORT INFORMATION
  Report Type: Spontaneous
  Country: US (occurrence: None)
  Receive Date: 20231231
  Receipt Date: 20231231
  Transmission Date: 20240109
  Serious: Yes (Hospitalization)
  Sender: FDA-Public Use
  Company Number: None

PATIENT
  Sex: Male

DRUGS (1)
  1. TOBRAMYCIN INHALATION SOLUTION [Suspect]
     Active Substance: TOBRAMYCIN
     Indication: Pneumonia pseudomonal
     Dosage: 300MG TWICE WEEKLY FOR 2 WKS INHALATION
     Route: 055
     Dates: start: 202209

REACTIONS (3)
  - Acute kidney injury [None]
  - Facial pain [None]
  - Cardiac disorder [None]
